FAERS Safety Report 8091993-2 (Version None)
Quarter: 2012Q1

REPORT INFORMATION
  Report Type: 
  Country: None (occurrence: None)
  Receive Date: 20120131
  Receipt Date: 20120118
  Transmission Date: 20120608
  Serious: Yes (Other)
  Sender: FDA-Public Use
  Company Number: GB-UCBSA-050210

PATIENT
  Age: 72 Year
  Sex: Male

DRUGS (7)
  1. CITALOPRAM [Concomitant]
     Dosage: 20 MG
     Dates: start: 20110301
  2. DIGOXIN [Concomitant]
     Dosage: 125 UG
     Dates: start: 20110301
  3. LEVETIRACETAM [Suspect]
     Dosage: UPTITRATED UPTO 1500 MG
     Dates: start: 20110101, end: 20110101
  4. AMITRIPTYLINE HCL [Concomitant]
     Dosage: 25 MG
     Dates: start: 20110301
  5. CODEINE [Concomitant]
     Dosage: 30 MG
     Dates: start: 20110301
  6. INDAPAMIDE [Concomitant]
     Dosage: 2.5 MG
     Dates: start: 20110301
  7. SIMVASTATIN [Concomitant]
     Dosage: 40 MG
     Dates: start: 20110301

REACTIONS (2)
  - DEPRESSION [None]
  - DELIRIUM [None]
